FAERS Safety Report 6672138-X (Version None)
Quarter: 2010Q2

REPORT INFORMATION
  Report Type: 
  Country: None (occurrence: None)
  Receive Date: 20100407
  Receipt Date: 20100407
  Transmission Date: 20101027
  Serious: Yes (Hospitalization)
  Sender: FDA-Public Use
  Company Number: None

PATIENT
  Age: 21 Year
  Sex: Female
  Weight: 63.5036 kg

DRUGS (1)
  1. ROCEPHIN [Suspect]
     Indication: URINARY TRACT INFECTION
     Dosage: ONCE IV DRIP
     Route: 041
     Dates: start: 20100402, end: 20100402

REACTIONS (10)
  - AGITATION [None]
  - CONFUSIONAL STATE [None]
  - DISORIENTATION [None]
  - DIZZINESS [None]
  - HEADACHE [None]
  - HEART RATE INCREASED [None]
  - HYPERACUSIS [None]
  - PHOTOPHOBIA [None]
  - RASH [None]
  - SPEECH DISORDER [None]
